FAERS Safety Report 24726162 (Version 1)
Quarter: 2024Q4

REPORT INFORMATION
  Report Type: Spontaneous
  Country: US (occurrence: None)
  Receive Date: 20241210
  Receipt Date: 20241210
  Transmission Date: 20250115
  Serious: Yes (Hospitalization)
  Sender: Public
  Company Number: None

PATIENT
  Age: 44 Year
  Sex: Male
  Weight: 128 kg

DRUGS (1)
  1. IOHEXOL [Suspect]
     Active Substance: IOHEXOL
     Indication: Imaging procedure
     Dosage: OTHER FREQUENCY : ONCE;?
     Route: 042
     Dates: start: 20210805, end: 20210805

REACTIONS (5)
  - Angioedema [None]
  - Pyrexia [None]
  - Pruritus [None]
  - Urticaria [None]
  - Peripheral swelling [None]

NARRATIVE: CASE EVENT DATE: 20210806
